FAERS Safety Report 23305572 (Version 1)
Quarter: 2023Q4

REPORT INFORMATION
  Report Type: Report from Study
  Country: MX (occurrence: MX)
  Receive Date: 20231218
  Receipt Date: 20231218
  Transmission Date: 20240110
  Serious: Yes (Other)
  Sender: FDA-Public Use
  Company Number: MX-ABBVIE-5383465

PATIENT
  Sex: Female
  Weight: 68 kg

DRUGS (7)
  1. VENCLEXTA [Suspect]
     Active Substance: VENETOCLAX
     Indication: Chronic lymphocytic leukaemia
     Dosage: FORM STRENGTH: 100 MILLIGRAM?LAST ADMIN DATE 2023?FREQUENCY TEXT: DAILY
     Route: 048
     Dates: start: 20230804
  2. VENCLEXTA [Suspect]
     Active Substance: VENETOCLAX
     Indication: Chronic lymphocytic leukaemia
     Dosage: 200 MG, FORM STRENGTH: 100 MG?FREQUENCY TEXT: DAILY
     Route: 048
     Dates: start: 202312
  3. VENCLEXTA [Suspect]
     Active Substance: VENETOCLAX
     Indication: Chronic lymphocytic leukaemia
     Dosage: 400 MILLIGRAM, FORM STRENGTH: 100 MILLIGRAM ?FIRST ADMIN DATE WAS 2023?FREQUENCY TEXT: DAILY
     Route: 048
     Dates: start: 2023, end: 202312
  4. VICTOZA [Concomitant]
     Active Substance: LIRAGLUTIDE
     Indication: Diabetes mellitus
     Dosage: 6MG/ML AT NIGHT?1.8U?START DATE TEXT: UNKNOWN
  5. VICTOZA [Concomitant]
     Active Substance: LIRAGLUTIDE
     Indication: Diabetes mellitus
     Dosage: 6MG/ML AT NIGHT?1.8U?START DATE TEXT: UNKNOWN
  6. INSULIN GLARGINE [Concomitant]
     Active Substance: INSULIN GLARGINE
     Indication: Diabetes mellitus
     Dosage: 31U 100 U/ML IN THE MORNING
     Route: 058
  7. METFORMIN HYDROCHLORIDE [Concomitant]
     Active Substance: METFORMIN HYDROCHLORIDE
     Indication: Diabetes mellitus
     Dosage: XR 1000 MILLIGRAM, FREQUENCY:MORNING AND NIGHT?START DATE TEXT: UNKNOWN

REACTIONS (17)
  - Throat tightness [Recovered/Resolved]
  - Headache [Recovered/Resolved]
  - Muscle spasms [Recovering/Resolving]
  - Fatigue [Not Recovered/Not Resolved]
  - Insomnia [Unknown]
  - Hypoaesthesia oral [Recovered/Resolved]
  - Increased appetite [Recovered/Resolved]
  - Back pain [Not Recovered/Not Resolved]
  - Diarrhoea [Not Recovered/Not Resolved]
  - Tachycardia [Unknown]
  - Dry eye [Not Recovered/Not Resolved]
  - Abdominal pain upper [Recovering/Resolving]
  - Dyspnoea [Recovered/Resolved]
  - Abdominal discomfort [Recovering/Resolving]
  - Skin discolouration [Recovered/Resolved]
  - Throat tightness [Recovered/Resolved]
  - Discomfort [Unknown]

NARRATIVE: CASE EVENT DATE: 20230101
